FAERS Safety Report 5684400-8 (Version None)
Quarter: 2008Q1

REPORT INFORMATION
  Report Type: 
  Country: None (occurrence: None)
  Receive Date: 20080327
  Receipt Date: 20080327
  Transmission Date: 20080703
  Serious: Yes (Hospitalization)
  Sender: FDA-Public Use
  Company Number: None

PATIENT
  Sex: Male
  Weight: 99.43 kg

DRUGS (1)
  1. TEMOZOLOMIDE [Suspect]
     Dosage: 5120 MG

REACTIONS (7)
  - HYPOAESTHESIA [None]
  - ILL-DEFINED DISORDER [None]
  - NAUSEA [None]
  - NEOPLASM PROGRESSION [None]
  - PYREXIA [None]
  - SPEECH DISORDER [None]
  - VOMITING [None]
